FAERS Safety Report 4810673-7 (Version None)
Quarter: 2005Q4

REPORT INFORMATION
  Report Type: 
  Country: None (occurrence: None)
  Receive Date: 20051026
  Receipt Date: 20000602
  Transmission Date: 20060501
  Serious: Yes (Hospitalization)
  Sender: FDA-Public Use
  Company Number: US-MERCK-00060309

PATIENT
  Sex: Female

DRUGS (1)
  1. VIOXX [Suspect]
     Indication: ARTHRITIS
     Route: 048

REACTIONS (9)
  - ABDOMINAL TENDERNESS [None]
  - APNOEA [None]
  - CARDIAC FAILURE CONGESTIVE [None]
  - DIFFICULTY IN WALKING [None]
  - GENERAL SYMPTOM [None]
  - ORAL INTAKE REDUCED [None]
  - ORAL PAIN [None]
  - SENSITIVITY OF TEETH [None]
  - TOOTHACHE [None]
